FAERS Safety Report 7491510-1 (Version None)
Quarter: 2011Q2

REPORT INFORMATION
  Report Type: 
  Country: None (occurrence: None)
  Receive Date: 20110519
  Receipt Date: 20110517
  Transmission Date: 20111010
  Serious: Yes (Life-Threatening, Hospitalization)
  Sender: FDA-Public Use
  Company Number: PHHY2011US37377

PATIENT
  Sex: Female
  Weight: 74.83 kg

DRUGS (8)
  1. DILAUDID [Concomitant]
     Indication: PAIN
  2. PHENERGAN HCL [Concomitant]
     Indication: NAUSEA
     Dosage: 25 MG, PRN
     Route: 042
  3. HYDREA [Concomitant]
     Indication: SICKLE CELL ANAEMIA
     Dosage: 1500 MG, DAILY
     Route: 048
  4. EXJADE [Suspect]
     Indication: SERUM FERRITIN INCREASED
  5. NARCAN [Concomitant]
     Dosage: 0.4 MG, UNK
     Route: 042
  6. BENADRYL ^ACHE^ [Concomitant]
  7. EXJADE [Suspect]
     Indication: SICKLE CELL ANAEMIA WITH CRISIS
     Dosage: 1500 MG, DAILY
     Route: 048
     Dates: start: 20110421
  8. FOLIC ACID [Concomitant]
     Indication: SICKLE CELL ANAEMIA
     Dosage: 1 MG, DAILY
     Route: 048

REACTIONS (5)
  - HEADACHE [None]
  - RESPIRATORY RATE DECREASED [None]
  - SICKLE CELL ANAEMIA WITH CRISIS [None]
  - LOSS OF CONSCIOUSNESS [None]
  - PAIN [None]
